FAERS Safety Report 5471046-X (Version None)
Quarter: 2007Q3

REPORT INFORMATION
  Report Type: 
  Country: None (occurrence: None)
  Receive Date: 20070928
  Receipt Date: 20070925
  Transmission Date: 20080115
  Serious: Yes (Hospitalization)
  Sender: FDA-Public Use
  Company Number: D0054655A

PATIENT
  Age: 78 Year
  Sex: Male

DRUGS (1)
  1. HYCAMTIN [Suspect]
     Dosage: 1.5MGM2 PER DAY
     Route: 065
     Dates: start: 20070917, end: 20070921

REACTIONS (4)
  - ABDOMINAL PAIN [None]
  - NAUSEA [None]
  - PERITONITIS [None]
  - VOMITING [None]
